FAERS Safety Report 17389537 (Version 2)
Quarter: 2020Q1

REPORT INFORMATION
  Report Type: Spontaneous
  Country: DE (occurrence: DE)
  Receive Date: 20200207
  Receipt Date: 20200227
  Transmission Date: 20200409
  Serious: Yes (Other)
  Sender: FDA-Public Use
  Company Number: DE-ASTRAZENECA-2020SE17284

PATIENT
  Sex: Female

DRUGS (3)
  1. LYNPARZA [Suspect]
     Active Substance: OLAPARIB
     Dosage: 600.0MG UNKNOWN
     Route: 048
  2. LYNPARZA [Suspect]
     Active Substance: OLAPARIB
     Dosage: 150+100 MG IN THE MORNING AND 150+100 MG IN THE EVENING UNKNOWN
     Route: 048
  3. LYNPARZA [Suspect]
     Active Substance: OLAPARIB
     Dosage: 150+100 MG IN THE MORNING AND 150+150MG IN THE EVENING (MISUSE) UNKNOWN
     Route: 048

REACTIONS (4)
  - Intentional product misuse [Unknown]
  - Abnormal faeces [Unknown]
  - Irritable bowel syndrome [Recovering/Resolving]
  - Constipation [Unknown]
